FAERS Safety Report 14356250 (Version 1)
Quarter: 2018Q1

REPORT INFORMATION
  Report Type: Spontaneous
  Country: US (occurrence: US)
  Receive Date: 20180105
  Receipt Date: 20180105
  Transmission Date: 20180509
  Serious: No
  Sender: FDA-Public Use
  Company Number: US-ALLERGAN-1752504US

PATIENT
  Age: 58 Year
  Sex: Female

DRUGS (4)
  1. KYBELLA [Suspect]
     Active Substance: DEOXYCHOLIC ACID
     Dosage: 2 VIALS, SINGLE
     Route: 058
     Dates: start: 201701, end: 201701
  2. KYBELLA [Suspect]
     Active Substance: DEOXYCHOLIC ACID
     Dosage: 3 VIALS, SINGLE
     Route: 058
     Dates: start: 201706, end: 201706
  3. KYBELLA [Suspect]
     Active Substance: DEOXYCHOLIC ACID
     Indication: FAT TISSUE INCREASED
     Dosage: 3 VIALS, SINGLE
     Route: 058
     Dates: start: 201601, end: 201601
  4. KYBELLA [Suspect]
     Active Substance: DEOXYCHOLIC ACID
     Dosage: 4 VIALS, SINGLE
     Route: 058
     Dates: start: 201702, end: 201702

REACTIONS (1)
  - Injection site nodule [Recovering/Resolving]

NARRATIVE: CASE EVENT DATE: 2016
